FAERS Safety Report 4311216-7 (Version None)
Quarter: 2004Q1

REPORT INFORMATION
  Report Type: 
  Country: None (occurrence: None)
  Receive Date: 20040302
  Receipt Date: 20040112
  Transmission Date: 20041129
  Serious: No
  Sender: FDA-Public Use
  Company Number: 200324504BWH

PATIENT
  Age: 83 Year
  Sex: Male

DRUGS (5)
  1. LEVITRA [Suspect]
     Indication: ERECTILE DYSFUNCTION
     Dosage: ORAL
     Route: 048
     Dates: start: 20030901
  2. VIAGRA [Concomitant]
  3. GLUCOPHAGE [Concomitant]
  4. PRANDIN [Concomitant]
  5. NITROGLYCERIN [Concomitant]

REACTIONS (1)
  - ERECTILE DYSFUNCTION [None]
